FAERS Safety Report 19700335 (Version 1)
Quarter: 2021Q3

REPORT INFORMATION
  Report Type: Spontaneous
  Country: CN (occurrence: CN)
  Receive Date: 20210813
  Receipt Date: 20210813
  Transmission Date: 20211014
  Serious: Yes (Other)
  Sender: FDA-Public Use
  Company Number: CN-ANIPHARMA-2021-CN-000243

PATIENT
  Sex: Male

DRUGS (3)
  1. CASODEX [Suspect]
     Active Substance: BICALUTAMIDE
     Indication: PROSTATE CANCER
     Dosage: 150 MG 1 DF DAILY / 150 MG 1 DF DAILY
     Route: 048
     Dates: start: 202107
  2. SHUANGDE [Concomitant]
     Route: 065
  3. ZOLADEX [Suspect]
     Active Substance: GOSERELIN ACETATE
     Dosage: 1 DF Q3MO
     Route: 058
     Dates: start: 202107

REACTIONS (4)
  - Cerebrovascular accident [Unknown]
  - Prostatic specific antigen increased [Unknown]
  - Haematuria [Unknown]
  - Off label use [Not Recovered/Not Resolved]
